FAERS Safety Report 10153081 (Version 1)
Quarter: 2014Q2

REPORT INFORMATION
  Report Type: Spontaneous
  Country: US (occurrence: US)
  Receive Date: 20140505
  Receipt Date: 20140505
  Transmission Date: 20141212
  Serious: Yes (Hospitalization)
  Sender: FDA-Public Use
  Company Number: US-BAYER-2014-064683

PATIENT
  Age: 35 Year
  Sex: Female
  Weight: 63.49 kg

DRUGS (16)
  1. YAZ [Suspect]
  2. GIANVI [Suspect]
  3. MINOCYCLINE [Concomitant]
     Indication: ACNE
     Dosage: 50 MG, UNK
     Dates: start: 20121016
  4. BENZONATATE [Concomitant]
     Dosage: 100 MG, UNK
     Dates: start: 20121016
  5. FLUVAX [Concomitant]
  6. MONTELUKAST [Concomitant]
     Dosage: 10 MG,1 TABLET EVERY DAY
     Route: 048
     Dates: start: 20121212
  7. ZITHROMAX [Concomitant]
     Dosage: 250 MG,2 TODAY, THEN NONE DAILY FOR 4 DAYS
     Route: 048
  8. ADVAIR DISKUS [Concomitant]
     Dosage: 100-50 MCG, 1PUFF BID
     Route: 048
  9. AZITHROMYCIN [Concomitant]
     Dosage: 250 MG, UNK
     Dates: start: 20121016, end: 20121213
  10. XYZAL [Concomitant]
     Dosage: 1 Q D
     Route: 048
  11. PROAIR HFA [Concomitant]
     Indication: ASTHMA
     Dosage: 2 PUFFS Q 4 HOURS PRN
     Route: 045
  12. PREDNISONE [Concomitant]
     Dosage: 20 MG TABLETS, 2 TABLETS DAILY FOR 3 DAYS, THEN 1 DAILY FOR 3 DAYS, THEN ? TABLET DAILY FOR 2 DAYS
     Route: 048
     Dates: start: 20121229
  13. CETIRIZINE HYDROCHLORIDE [Concomitant]
     Indication: HYPERSENSITIVITY
     Dosage: 10 MG, QD
     Route: 048
  14. FLUTICASONE W/SALMETEROL [Concomitant]
     Indication: ASTHMA
     Route: 045
  15. ALBUTEROL [Concomitant]
     Route: 045
  16. SINGULAIR [Concomitant]
     Dosage: 10 MG, QD
     Route: 048

REACTIONS (1)
  - Pulmonary embolism [None]
